FAERS Safety Report 4307078-4 (Version None)
Quarter: 2004Q1

REPORT INFORMATION
  Report Type: 
  Country: None (occurrence: None)
  Receive Date: 20040227
  Receipt Date: 20031107
  Transmission Date: 20041129
  Serious: Yes (Hospitalization)
  Sender: FDA-Public Use
  Company Number: PHNU2003DE03979

PATIENT
  Age: 42 Year
  Sex: Female

DRUGS (2)
  1. CLOZARIL [Suspect]
     Indication: PSYCHOTIC DISORDER
     Dosage: UP TO 200 MG/DAY
     Route: 048
     Dates: start: 19960101
  2. TIAPRIDEX [Concomitant]
     Route: 048

REACTIONS (3)
  - ANAEMIA [None]
  - HAEMOGLOBIN DECREASED [None]
  - IRON DEFICIENCY ANAEMIA [None]
